FAERS Safety Report 13258516 (Version 1)
Quarter: 2017Q1

REPORT INFORMATION
  Report Type: Spontaneous
  Country: US (occurrence: US)
  Receive Date: 20170222
  Receipt Date: 20170222
  Transmission Date: 20170428
  Serious: No
  Sender: FDA-Public Use
  Company Number: US-009507513-1702USA009408

PATIENT
  Age: 53 Year
  Sex: Female

DRUGS (5)
  1. MICAFUNGIN [Concomitant]
     Active Substance: MICAFUNGIN
     Indication: MUCORMYCOSIS
  2. ISAVUCONAZONIUM [Concomitant]
     Active Substance: ISAVUCONAZONIUM
     Indication: MUCORMYCOSIS
  3. AMPHOTERICIN B. [Concomitant]
     Active Substance: AMPHOTERICIN B
     Indication: MUCORMYCOSIS
  4. NOXAFIL [Suspect]
     Active Substance: POSACONAZOLE
     Indication: MUCORMYCOSIS
     Dosage: UNK
     Route: 048
  5. LIPIDS (UNSPECIFIED) [Concomitant]
     Indication: MUCORMYCOSIS

REACTIONS (1)
  - Product use issue [Unknown]
